FAERS Safety Report 9468747 (Version 1)
Quarter: 2013Q3

REPORT INFORMATION
  Report Type: Spontaneous
  Country: CH (occurrence: CH)
  Receive Date: 20130821
  Receipt Date: 20130821
  Transmission Date: 20140515
  Serious: Yes (Hospitalization)
  Sender: FDA-Public Use
  Company Number: CH-TEVA-426238ISR

PATIENT
  Age: 68 Year
  Sex: Female

DRUGS (7)
  1. IRFEN [Suspect]
     Indication: PELVIC FRACTURE
     Dosage: DOSE, STRENGTH, EXACT THERAPY STOP DATE UNKNOWN
     Route: 048
     Dates: start: 20121219, end: 201301
  2. NOVALGIN [Suspect]
     Indication: PELVIC FRACTURE
     Dosage: DOSE, STRENGTH, EXACT THERAPY STOP DATE UNKNOWN
     Route: 048
     Dates: start: 20121219, end: 201301
  3. DAFALGAN [Suspect]
     Indication: PELVIC FRACTURE
     Dosage: DOSE, STRENGTH, EXACT THERAPY STOP DATE UNKNOWN
     Route: 048
     Dates: start: 20121219, end: 201301
  4. PANTOZOL [Suspect]
     Indication: PELVIC FRACTURE
     Dosage: DOSE, STRENGTH, EXACT THERAPY STOP DATE UNKNOWN
     Route: 048
     Dates: start: 20121219, end: 201301
  5. ASPIRIN CARDIO [Concomitant]
     Dosage: 100 MILLIGRAM DAILY; CONTINUING
     Route: 048
  6. VOTUM [Concomitant]
     Dosage: 1 DOSAGE FORMS DAILY; CONTINUING
     Route: 048
  7. TORASEM-MEPHA [Concomitant]
     Dosage: .5 DOSAGE FORMS DAILY; CONTINUING
     Route: 048

REACTIONS (1)
  - Acute generalised exanthematous pustulosis [Recovering/Resolving]
